FAERS Safety Report 7743072-9 (Version None)
Quarter: 2011Q3

REPORT INFORMATION
  Report Type: 
  Country: None (occurrence: None)
  Receive Date: 20110912
  Receipt Date: 20110907
  Transmission Date: 20111222
  Serious: Yes (Life-Threatening, Hospitalization)
  Sender: FDA-Public Use
  Company Number: FR-ROXANE LABORATORIES, INC.-2011-RO-01221RO

PATIENT
  Age: 53 Year
  Sex: Female

DRUGS (6)
  1. PANTOPRAZOLE [Suspect]
     Dosage: 20 MG
  2. SODIUM BICARBONATE [Concomitant]
     Indication: PROPHYLAXIS AGAINST DEHYDRATION
     Route: 042
  3. VALACYCLOVIR HYDROCHLORIDE [Suspect]
     Dosage: 1000 MG
  4. FLUOXETINE [Suspect]
     Dosage: 20 MG
  5. DEXTROSE [Concomitant]
     Indication: PROPHYLAXIS AGAINST DEHYDRATION
     Route: 042
  6. METHOTREXATE [Suspect]
     Indication: PRECURSOR T-LYMPHOBLASTIC LYMPHOMA/LEUKAEMIA

REACTIONS (2)
  - RENAL FAILURE [None]
  - DRUG CLEARANCE DECREASED [None]
